FAERS Safety Report 6274971-5 (Version None)
Quarter: 2009Q3

REPORT INFORMATION
  Report Type: 
  Country: None (occurrence: None)
  Receive Date: 20090717
  Receipt Date: 20090709
  Transmission Date: 20100115
  Serious: Yes (Death, Other)
  Sender: FDA-Public Use
  Company Number: 2007JP005468

PATIENT
  Age: 37 Year
  Sex: Male

DRUGS (3)
  1. PROGRAF [Suspect]
     Indication: LIVER TRANSPLANT
     Dosage: ORAL
     Route: 048
     Dates: start: 20050401
  2. CORTICOSTEROIDS [Concomitant]
  3. PEGINTERFERON ALFA-2B W/RIBAVIRIN (RIBAVIRIN, PEGINTERFERON ALFA-2B) [Concomitant]

REACTIONS (13)
  - ANAEMIA [None]
  - ASCITES [None]
  - COMPLICATIONS OF TRANSPLANTED LIVER [None]
  - HAEMORRHAGIC DIATHESIS [None]
  - HEPATIC FAILURE [None]
  - HEPATIC FIBROSIS [None]
  - HEPATITIS C RNA INCREASED [None]
  - HEPATITIS CHOLESTATIC [None]
  - INFECTION [None]
  - LEUKOPENIA [None]
  - PROTHROMBIN TIME SHORTENED [None]
  - RENAL FAILURE [None]
  - THROMBOCYTOPENIA [None]
